FAERS Safety Report 9837488 (Version 1)
Quarter: 2013Q4

REPORT INFORMATION
  Report Type: Spontaneous
  Country: US (occurrence: None)
  Receive Date: 20131205
  Receipt Date: 20131205
  Transmission Date: 20140711
  Serious: Yes (Other)
  Sender: FDA-Public Use
  Company Number: 163-POMAL-13093127

PATIENT
  Age: 59 Year
  Sex: Male

DRUGS (10)
  1. POMALYST (POMALIDOMIDE) (4 MILLIGRAM, CAPSULES) [Suspect]
     Indication: PLASMA CELL MYELOMA
     Dosage: 21 IN 28
     Route: 048
     Dates: start: 20130620, end: 2013
  2. DEXAMETHASONE (DEXAMETHASONE) (UNKNOWN) [Concomitant]
     Indication: PRODUCT USED FOR UNKNOWN INDICATION
  3. CIPRO (CIPROFLOXACIN) [Concomitant]
  4. CIALIS (TADAFINIL) [Concomitant]
  5. PROTONIX DR [Concomitant]
  6. AMLODIPINE BESYLATE (AMLODIPINE BESILATE) [Concomitant]
  7. ACYCLOVIR (ACICLOVIR) [Concomitant]
  8. FENOFIBRATE (FENOFIBRATE) [Concomitant]
  9. ASPIRIN (ACETYLSALICYLIC ACID) [Concomitant]
  10. PREDNISONE (PREDNISONE) [Concomitant]

REACTIONS (4)
  - Adverse drug reaction [None]
  - Irritability [None]
  - Nervousness [None]
  - Insomnia [None]
